FAERS Safety Report 7496023-9 (Version None)
Quarter: 2011Q2

REPORT INFORMATION
  Report Type: 
  Country: None (occurrence: None)
  Receive Date: 20110523
  Receipt Date: 20110519
  Transmission Date: 20111010
  Serious: Yes (Other)
  Sender: FDA-Public Use
  Company Number: US-JNJFOC-20110500085

PATIENT
  Sex: Female

DRUGS (1)
  1. NUCYNTA [Suspect]
     Indication: PROCEDURAL PAIN
     Route: 048
     Dates: start: 20110401

REACTIONS (4)
  - NAUSEA [None]
  - PALPITATIONS [None]
  - HYPERSENSITIVITY [None]
  - DIZZINESS [None]
